FAERS Safety Report 23785611 (Version 1)
Quarter: 2024Q2

REPORT INFORMATION
  Report Type: Spontaneous
  Country: US (occurrence: US)
  Receive Date: 20240425
  Receipt Date: 20240425
  Transmission Date: 20240716
  Serious: No
  Sender: FDA-Public Use
  Company Number: US-BRISTOL-MYERS SQUIBB COMPANY-2024-062793

PATIENT
  Age: 42 Year
  Sex: Female

DRUGS (1)
  1. OPDIVO [Suspect]
     Active Substance: NIVOLUMAB
     Indication: Hodgkin^s disease nodular sclerosis
     Dosage: DOSE : 200 MG;     FREQ : EVERY 3 WEEKS
     Route: 042

REACTIONS (1)
  - Off label use [Unknown]
